FAERS Safety Report 4356409-8 (Version None)
Quarter: 2004Q2

REPORT INFORMATION
  Report Type: 
  Country: None (occurrence: None)
  Receive Date: 20040511
  Receipt Date: 20040511
  Transmission Date: 20050107
  Serious: Yes (Other)
  Sender: FDA-Public Use
  Company Number: None

PATIENT
  Age: 40 Year
  Sex: Female

DRUGS (1)
  1. ALOSETRON 1 MG [Suspect]
     Indication: IRRITABLE BOWEL SYNDROME
     Dosage: 1 MG DAILY ORAL
     Route: 048
     Dates: start: 20040401, end: 20040426

REACTIONS (1)
  - FLATULENCE [None]
